FAERS Safety Report 4975042-8 (Version None)
Quarter: 2006Q2

REPORT INFORMATION
  Report Type: 
  Country: None (occurrence: None)
  Receive Date: 20060414
  Receipt Date: 20060414
  Transmission Date: 20061013
  Serious: Yes (Hospitalization)
  Sender: FDA-Public Use
  Company Number: None

PATIENT
  Age: 53 Year
  Sex: Male

DRUGS (2)
  1. AMITRIPTYLINE HCL [Suspect]
     Indication: DEPRESSION
     Dosage: 50 MG   QHS   PO
     Route: 048
     Dates: start: 20060330, end: 20060406
  2. QUETIAPINE   100 MG [Suspect]
     Indication: DEPRESSION
     Dosage: 100 MG  DAILY  PO
     Route: 048
     Dates: start: 20060320, end: 20060406

REACTIONS (3)
  - RENAL FAILURE ACUTE [None]
  - SEDATION [None]
  - URINARY RETENTION [None]
